FAERS Safety Report 4943735-4 (Version None)
Quarter: 2006Q1

REPORT INFORMATION
  Report Type: 
  Country: None (occurrence: None)
  Receive Date: 20060314
  Receipt Date: 20051020
  Transmission Date: 20060701
  Serious: Yes (Hospitalization, Other)
  Sender: FDA-Public Use
  Company Number: US-MERCK-0510USA08421

PATIENT
  Age: 68 Year
  Sex: Female
  Weight: 76 kg

DRUGS (1)
  1. VIOXX [Suspect]
     Indication: OSTEOARTHRITIS
     Route: 048
     Dates: start: 20000501, end: 20031019

REACTIONS (3)
  - ARTERIAL OCCLUSIVE DISEASE [None]
  - MENISCUS LESION [None]
  - MYOCARDIAL INFARCTION [None]
